FAERS Safety Report 4804961-8 (Version None)
Quarter: 2005Q4

REPORT INFORMATION
  Report Type: 
  Country: None (occurrence: None)
  Receive Date: 20051017
  Receipt Date: 20051003
  Transmission Date: 20060501
  Serious: Yes (Other)
  Sender: FDA-Public Use
  Company Number: 2005099567

PATIENT
  Age: 37 Year
  Sex: Female
  Weight: 89.8122 kg

DRUGS (19)
  1. NEURONTIN [Suspect]
     Indication: NEUROPATHY PERIPHERAL
     Dosage: 600 MG (300 MG, 2 IN 1 D), ORAL
     Route: 048
     Dates: start: 20030101
  2. CECLOR [Concomitant]
  3. THEOPHYLLINE [Concomitant]
  4. TAMBOCOR [Concomitant]
  5. LANOXIN [Concomitant]
  6. CLONIDINE [Concomitant]
  7. LOTENSIN [Concomitant]
  8. GLUCOPHAGE [Concomitant]
  9. BUMEX [Concomitant]
  10. MICRO-K (POTASSIUM CHLORIDE) [Concomitant]
  11. COUMADIN [Concomitant]
  12. METHOTREXATE [Concomitant]
  13. PRILOSEC [Concomitant]
  14. NEXIUM [Concomitant]
  15. VERAPAMIL [Concomitant]
  16. DILTIAZEM [Concomitant]
  17. SEREVENT [Concomitant]
  18. AEROBID [Concomitant]
  19. MAXAIR [Concomitant]

REACTIONS (2)
  - CEREBROVASCULAR ACCIDENT [None]
  - FACTOR V DEFICIENCY [None]
